FAERS Safety Report 6245421-X (Version None)
Quarter: 2009Q2

REPORT INFORMATION
  Report Type: 
  Country: None (occurrence: None)
  Receive Date: 20090623
  Receipt Date: 20080930
  Transmission Date: 20091009
  Serious: Yes (Hospitalization)
  Sender: FDA-Public Use
  Company Number: 200814187

PATIENT
  Age: 2 Day
  Sex: Female

DRUGS (1)
  1. RHOPHYLAC [Suspect]
     Indication: PROPHYLAXIS AGAINST RH ISOIMMUNISATION
     Dosage: 300 UG DAILY IM
     Route: 030
     Dates: start: 20080630, end: 20080630

REACTIONS (3)
  - BLOOD BILIRUBIN INCREASED [None]
  - COOMBS DIRECT TEST POSITIVE [None]
  - JAUNDICE [None]
